FAERS Safety Report 11660424 (Version 1)
Quarter: 2015Q4

REPORT INFORMATION
  Report Type: Spontaneous
  Country: DE (occurrence: DE)
  Receive Date: 20151026
  Receipt Date: 20151026
  Transmission Date: 20160304
  Serious: Yes (Hospitalization)
  Sender: FDA-Public Use
  Company Number: DE-BAXTER-2015BAX056828

PATIENT
  Age: 24 Year
  Sex: Female
  Weight: 46 kg

DRUGS (10)
  1. CEFUROXIM [Suspect]
     Active Substance: CEFUROXIME
     Indication: PROPHYLAXIS
     Route: 042
     Dates: start: 20150804
  2. HYDROCORTISON [Suspect]
     Active Substance: HYDROCORTISONE
     Indication: SUPPLEMENTATION THERAPY
     Dosage: MORNING AND NOON, LONG TERM MEDICATION
     Route: 048
  3. L-THYROXIN HENNING [Concomitant]
     Indication: SUPPLEMENTATION THERAPY
     Dosage: LONG TERM MEDICATION
     Route: 048
  4. MINIRIN [Concomitant]
     Active Substance: DESMOPRESSIN ACETATE
     Indication: DIABETES INSIPIDUS
     Dosage: LONG TERM MEDICATION
     Route: 048
  5. HYDROCORTISON [Suspect]
     Active Substance: HYDROCORTISONE
     Route: 042
     Dates: start: 20150804
  6. MINIRIN [Concomitant]
     Active Substance: DESMOPRESSIN ACETATE
     Indication: SUPPLEMENTATION THERAPY
     Dosage: SPRAY, LONG TERM MEDICATION
     Route: 065
  7. TISSEEL [Suspect]
     Active Substance: FIBRINOGEN HUMAN\THROMBIN HUMAN
     Route: 065
     Dates: start: 20150806
  8. MINIRIN [Concomitant]
     Active Substance: DESMOPRESSIN ACETATE
     Dosage: LONG TERM MEDICATION, WHEN PERSISTENT POLYURIA
     Route: 048
  9. NOVALGIN [Concomitant]
     Active Substance: METAMIZOLE SODIUM
     Indication: PAIN
     Dosage: MAX 4 X 1G WHEN PAIN OCCURRES
     Route: 048
  10. TISSEEL [Suspect]
     Active Substance: FIBRINOGEN HUMAN\THROMBIN HUMAN
     Indication: TISSUE SEALING
     Route: 065
     Dates: start: 20150804

REACTIONS (2)
  - Cerebrospinal fluid leakage [Recovered/Resolved]
  - Hypokalaemia [Unknown]

NARRATIVE: CASE EVENT DATE: 201508
